FAERS Safety Report 22646337 (Version 1)
Quarter: 2023Q2

REPORT INFORMATION
  Report Type: Spontaneous
  Country: JP (occurrence: JP)
  Receive Date: 20230627
  Receipt Date: 20230627
  Transmission Date: 20230721
  Serious: Yes (Other)
  Sender: FDA-Public Use
  Company Number: JP-Covis Pharma-18736

PATIENT
  Age: 67 Year
  Sex: Male

DRUGS (4)
  1. ALVESCO [Suspect]
     Active Substance: CICLESONIDE
     Indication: COVID-19
     Route: 055
  2. FAVIPIRAVIR [Concomitant]
     Active Substance: FAVIPIRAVIR
     Indication: COVID-19
  3. ZOSYN [Concomitant]
     Active Substance: PIPERACILLIN SODIUM\TAZOBACTAM SODIUM
     Indication: COVID-19
  4. HEPARIN SODIUM [Concomitant]
     Active Substance: HEPARIN SODIUM
     Indication: COVID-19

REACTIONS (2)
  - Pulmonary embolism [Recovering/Resolving]
  - Off label use [Unknown]
